FAERS Safety Report 8941832 (Version 3)
Quarter: 2013Q1

REPORT INFORMATION
  Report Type: Spontaneous
  Country: FR (occurrence: FR)
  Receive Date: 20121203
  Receipt Date: 20130121
  Transmission Date: 20140127
  Serious: Yes (Hospitalization, Disabling)
  Sender: FDA-Public Use
  Company Number: PHHY2012FR109515

PATIENT
  Sex: Female

DRUGS (1)
  1. FUROSEMIDE [Suspect]

REACTIONS (1)
  - Deafness [Not Recovered/Not Resolved]
